FAERS Safety Report 5451820-6 (Version None)
Quarter: 2007Q3

REPORT INFORMATION
  Report Type: 
  Country: None (occurrence: None)
  Receive Date: 20070912
  Receipt Date: 20070831
  Transmission Date: 20080115
  Serious: Yes (Hospitalization)
  Sender: FDA-Public Use
  Company Number: AU-1163780

PATIENT
  Age: 80 Year
  Sex: Female

DRUGS (2)
  1. TOBREX [Suspect]
     Indication: PROPHYLAXIS
     Dosage: 1 GTT Q4H OPHTHALMIC
     Route: 047
     Dates: start: 20070614, end: 20070616
  2. ADVANTAN (METHYLPREDNISOLONE ACEPONATE) [Concomitant]

REACTIONS (2)
  - DYSPNOEA [None]
  - WHEEZING [None]
